FAERS Safety Report 17375640 (Version 1)
Quarter: 2020Q1

REPORT INFORMATION
  Report Type: Spontaneous
  Country: US (occurrence: US)
  Receive Date: 20200206
  Receipt Date: 20200206
  Transmission Date: 20200409
  Serious: No
  Sender: FDA-Public Use
  Company Number: US-BEH-2020112402

PATIENT
  Sex: Female

DRUGS (1)
  1. HIZENTRA [Suspect]
     Active Substance: HUMAN IMMUNOGLOBULIN G
     Indication: IMMUNODEFICIENCY COMMON VARIABLE
     Dosage: 15 GRAM, QW
     Route: 058
     Dates: start: 201907

REACTIONS (5)
  - Infusion site nodule [Recovered/Resolved]
  - No adverse event [Unknown]
  - Wrong technique in device usage process [Unknown]
  - Infusion site bruising [Recovered/Resolved]
  - Incorrect dose administered [Unknown]
